FAERS Safety Report 15607805 (Version 1)
Quarter: 2018Q4

REPORT INFORMATION
  Report Type: Spontaneous
  Country: US (occurrence: US)
  Receive Date: 20181112
  Receipt Date: 20181112
  Transmission Date: 20190205
  Serious: Yes (Other)
  Sender: FDA-Public Use
  Company Number: None

PATIENT
  Age: 69 Year
  Sex: Female
  Weight: 60.75 kg

DRUGS (8)
  1. CRANBERRY. [Concomitant]
     Active Substance: CRANBERRY
  2. MVI [Concomitant]
     Active Substance: VITAMINS
  3. ONDANSETRON. [Suspect]
     Active Substance: ONDANSETRON
     Indication: PRODUCT USED FOR UNKNOWN INDICATION
     Dosage: ?          QUANTITY:30 TABLET(S);OTHER ROUTE:MELTED ON THE TONGUE?
     Dates: start: 20181112, end: 20181112
  4. PRPFESTERON [Concomitant]
  5. PREMARIN [Concomitant]
     Active Substance: ESTROGENS, CONJUGATED
  6. BIOTIN [Concomitant]
     Active Substance: BIOTIN
  7. VIT B [Concomitant]
     Active Substance: VITAMIN B
  8. TOPROL XL [Concomitant]
     Active Substance: METOPROLOL SUCCINATE

REACTIONS (4)
  - Paraesthesia oral [None]
  - Ageusia [None]
  - Tongue discomfort [None]
  - Application site swelling [None]
